FAERS Safety Report 5008948-4 (Version None)
Quarter: 2006Q2

REPORT INFORMATION
  Report Type: 
  Country: None (occurrence: None)
  Receive Date: 20060518
  Receipt Date: 20060509
  Transmission Date: 20061013
  Serious: Yes (Other)
  Sender: FDA-Public Use
  Company Number: 163-20785-06050390

PATIENT
  Age: 47 Year
  Sex: Male

DRUGS (1)
  1. THALOMID (THALIDOMIDIE) (CAPSULES) [Suspect]
     Indication: MULTIPLE MYELOMA
     Dosage: 200 MG, DAILY, ORAL
     Route: 048

REACTIONS (2)
  - NERVE INJURY [None]
  - PHRENIC NERVE PARALYSIS [None]
